FAERS Safety Report 4698394-5 (Version None)
Quarter: 2005Q2

REPORT INFORMATION
  Report Type: 
  Country: None (occurrence: None)
  Receive Date: 20050621
  Receipt Date: 20050603
  Transmission Date: 20051028
  Serious: Yes (Hospitalization)
  Sender: FDA-Public Use
  Company Number: DSA_26564_2005

PATIENT
  Age: 85 Year
  Sex: Female
  Weight: 46.5 kg

DRUGS (4)
  1. TEMESTA [Suspect]
     Dosage: 0.5 MG Q DAY
     Dates: start: 20050405, end: 20050407
  2. TEMESTA [Suspect]
     Dosage: 1 MG Q DAY
     Dates: start: 20050404, end: 20050404
  3. EBIXA [Suspect]
     Dosage: 5 MG Q DAY
     Dates: start: 20050405
  4. TRITTICO [Suspect]
     Dosage: 50 MG Q DAY
     Dates: start: 20050404

REACTIONS (3)
  - ARTHRALGIA [None]
  - FALL [None]
  - FEMORAL NECK FRACTURE [None]
